FAERS Safety Report 19630350 (Version 3)
Quarter: 2025Q3

REPORT INFORMATION
  Report Type: Spontaneous
  Country: US (occurrence: US)
  Receive Date: 20210729
  Receipt Date: 20250825
  Transmission Date: 20251020
  Serious: Yes (Death, Other)
  Sender: TEVA
  Company Number: US-TEVA-2021-US-1935538

PATIENT
  Age: 58 Year
  Sex: Male
  Weight: 54.4 kg

DRUGS (9)
  1. VALSARTAN [Suspect]
     Active Substance: VALSARTAN
     Indication: Hypertension
     Route: 065
     Dates: start: 20160202, end: 20160303
  2. PRAVASTATIN [Concomitant]
     Active Substance: PRAVASTATIN
     Indication: Hyperlipidaemia
     Route: 048
     Dates: start: 2008, end: 20200229
  3. LANTUS [Concomitant]
     Active Substance: INSULIN GLARGINE
     Indication: Type 2 diabetes mellitus
     Dosage: DOSAGE TEXT: DOSAGE: 100 UNITS TWICE DAILY
     Route: 058
     Dates: start: 2008, end: 20200229
  4. ASPIRIN [Concomitant]
     Active Substance: ASPIRIN
     Indication: Cardiac disorder
     Route: 065
     Dates: start: 2016, end: 20200229
  5. VALSARTAN [Suspect]
     Active Substance: VALSARTAN
     Indication: Hypertension
     Route: 065
     Dates: start: 20160503, end: 20180731
  6. HYDROCHLOROTHIAZIDE [Concomitant]
     Active Substance: HYDROCHLOROTHIAZIDE
     Indication: Hypertension
     Route: 048
     Dates: start: 2008, end: 20200229
  7. AMLODIPINE [Concomitant]
     Active Substance: AMLODIPINE BESYLATE
     Indication: Hypertension
     Route: 048
     Dates: start: 2008, end: 20200229
  8. CILOSTAZOL [Concomitant]
     Active Substance: CILOSTAZOL
     Indication: Hypertension
     Dosage: DOSAGE TEXT: DOSAGE: 100 MG 1 TABLET BID
     Route: 048
     Dates: start: 2008, end: 20200229
  9. LOSARTAN [Suspect]
     Active Substance: LOSARTAN
     Indication: Product used for unknown indication
     Route: 065

REACTIONS (4)
  - Oesophageal carcinoma [Fatal]
  - Biliary obstruction [Unknown]
  - Metastases to liver [Not Recovered/Not Resolved]
  - Cholangiocarcinoma [Not Recovered/Not Resolved]
